FAERS Safety Report 24626964 (Version 2)
Quarter: 2024Q4

REPORT INFORMATION
  Report Type: Spontaneous
  Country: US (occurrence: US)
  Receive Date: 20241115
  Receipt Date: 20241122
  Transmission Date: 20250115
  Serious: No
  Sender: NOVO NORDISK
  Company Number: US-NOVOPROD-1264750

PATIENT
  Age: 66 Year
  Sex: Female

DRUGS (4)
  1. NOVOLOG [Suspect]
     Active Substance: INSULIN ASPART
     Indication: Type 1 diabetes mellitus
     Dosage: 9 UNITS PER MEAL.
     Route: 058
     Dates: start: 202305
  2. FIASP [Suspect]
     Active Substance: INSULIN ASPART
     Indication: Type 1 diabetes mellitus
     Dosage: 9 UNITS PER MEAL
     Route: 058
  3. NovoPen Echo Plus [Concomitant]
     Indication: Device therapy
     Dosage: UNK
     Route: 058
     Dates: start: 202305
  4. NovoFine 32 [Concomitant]
     Indication: Device therapy
     Dosage: UNK
     Route: 058

REACTIONS (3)
  - Fine motor skill dysfunction [Unknown]
  - Arthritis [Unknown]
  - Blood glucose fluctuation [Not Recovered/Not Resolved]
